FAERS Safety Report 22197106 (Version 1)
Quarter: 2023Q2

REPORT INFORMATION
  Report Type: Spontaneous
  Country: SE (occurrence: SE)
  Receive Date: 20230411
  Receipt Date: 20230411
  Transmission Date: 20230722
  Serious: Yes (Disabling)
  Sender: FDA-Public Use
  Company Number: None

PATIENT
  Age: 79 Year
  Sex: Male
  Weight: 64 kg

DRUGS (3)
  1. CIPROFLOXACIN [Suspect]
     Active Substance: CIPROFLOXACIN
     Indication: Urinary tract infection
     Route: 048
     Dates: start: 20210406, end: 20210416
  2. COMIRNATY [Suspect]
     Active Substance: TOZINAMERAN
     Dosage: F?RSTA DOS
     Dates: start: 20210320
  3. CANDESARTAN [Concomitant]
     Active Substance: CANDESARTAN

REACTIONS (8)
  - Swelling [Recovering/Resolving]
  - Muscular weakness [Recovering/Resolving]
  - Peripheral swelling [Recovering/Resolving]
  - Torticollis [Recovering/Resolving]
  - Fatigue [Recovering/Resolving]
  - Osteoarthritis [Recovering/Resolving]
  - Joint swelling [Recovering/Resolving]
  - Myalgia [Recovering/Resolving]

NARRATIVE: CASE EVENT DATE: 20210101
